FAERS Safety Report 18867032 (Version 5)
Quarter: 2021Q2

REPORT INFORMATION
  Report Type: Report from Study
  Country: CA (occurrence: CA)
  Receive Date: 20210209
  Receipt Date: 20210420
  Transmission Date: 20210717
  Serious: Yes (Other)
  Sender: FDA-Public Use
  Company Number: CA-JNJFOC-20210138932

PATIENT
  Age: 20 Year
  Sex: Male

DRUGS (1)
  1. SIMPONI [Suspect]
     Active Substance: GOLIMUMAB
     Indication: ANKYLOSING SPONDYLITIS
     Dosage: 50.00 MG / 0.50 ML
     Route: 058
     Dates: start: 20200302

REACTIONS (7)
  - Device issue [Unknown]
  - Accidental exposure to product [Unknown]
  - Injection site vesicles [Unknown]
  - Ankylosing spondylitis [Unknown]
  - Underdose [Unknown]
  - Device leakage [Unknown]
  - Therapeutic product effect decreased [Unknown]

NARRATIVE: CASE EVENT DATE: 20210122
